FAERS Safety Report 25577074 (Version 2)
Quarter: 2025Q3

REPORT INFORMATION
  Report Type: Report from Study
  Country: EU (occurrence: EU)
  Receive Date: 20250718
  Receipt Date: 20250728
  Transmission Date: 20251021
  Serious: Yes (Other)
  Sender: NOVARTIS
  Company Number: EU-002147023-NVSC2025IT113472

PATIENT
  Age: 44 Year
  Sex: Female

DRUGS (1)
  1. KISQALI [Suspect]
     Active Substance: RIBOCICLIB SUCCINATE
     Indication: Breast cancer
     Dosage: 400 MG, 21D (DAILY FOR 21 DAYS - 7 DAYS OFF) (28-DAY CYCLES)
     Route: 048
     Dates: start: 20250617, end: 20250707

REACTIONS (1)
  - Neutrophil count decreased [Recovering/Resolving]

NARRATIVE: CASE EVENT DATE: 20250714
